FAERS Safety Report 22286733 (Version 2)
Quarter: 2023Q4

REPORT INFORMATION
  Report Type: Report from Study
  Country: US (occurrence: US)
  Receive Date: 20230505
  Receipt Date: 20231205
  Transmission Date: 20240110
  Serious: No
  Sender: FDA-Public Use
  Company Number: US-SA-SAC20230503000903

PATIENT
  Sex: Male
  Weight: 104.3 kg

DRUGS (1)
  1. DUPILUMAB [Suspect]
     Active Substance: DUPILUMAB
     Indication: Eosinophilia
     Dosage: 300 MG, QOW
     Route: 058

REACTIONS (2)
  - Rash [Unknown]
  - Product use in unapproved indication [Unknown]
